FAERS Safety Report 6841953-1 (Version None)
Quarter: 2010Q3

REPORT INFORMATION
  Report Type: 
  Country: None (occurrence: None)
  Receive Date: 20100714
  Receipt Date: 20090417
  Transmission Date: 20110219
  Serious: No
  Sender: FDA-Public Use
  Company Number: US-PFIZER INC-2007059302

PATIENT
  Sex: Male
  Weight: 71.8 kg

DRUGS (3)
  1. CHANTIX [Suspect]
     Dates: start: 20070625, end: 20070702
  2. PLAVIX [Concomitant]
  3. LANOXIN [Concomitant]

REACTIONS (4)
  - CHEST PAIN [None]
  - DECREASED APPETITE [None]
  - DIARRHOEA [None]
  - FLATULENCE [None]
